FAERS Safety Report 5049328-5 (Version None)
Quarter: 2006Q3

REPORT INFORMATION
  Report Type: 
  Country: None (occurrence: None)
  Receive Date: 20060706
  Receipt Date: 20060619
  Transmission Date: 20061208
  Serious: Yes (Hospitalization)
  Sender: FDA-Public Use
  Company Number: 226781

PATIENT
  Sex: Female

DRUGS (2)
  1. HERCEPTIN [Suspect]
     Indication: BREAST CANCER
  2. TAXOTERE [Suspect]
     Indication: BREAST CANCER

REACTIONS (2)
  - BLISTER [None]
  - SKIN REACTION [None]
